FAERS Safety Report 13377922 (Version 1)
Quarter: 2017Q1

REPORT INFORMATION
  Report Type: Spontaneous
  Country: US (occurrence: US)
  Receive Date: 20170328
  Receipt Date: 20170328
  Transmission Date: 20170429
  Serious: Yes (Hospitalization)
  Sender: FDA-Public Use
  Company Number: US-PFIZER INC-2017111741

PATIENT
  Age: 58 Year
  Sex: Male

DRUGS (6)
  1. ZIPRASIDONE HCL [Suspect]
     Active Substance: ZIPRASIDONE HYDROCHLORIDE
     Dosage: 120 MG, DAILY
     Dates: start: 2014, end: 2014
  2. CLOZAPINE. [Concomitant]
     Active Substance: CLOZAPINE
     Indication: PSYCHOTHERAPY
     Dosage: 500 MG, DAILY
     Dates: start: 2001
  3. ZIPRASIDONE HCL [Suspect]
     Active Substance: ZIPRASIDONE HYDROCHLORIDE
     Dosage: 160 MG, DAILY
     Dates: start: 201410, end: 2014
  4. ZIPRASIDONE HCL [Suspect]
     Active Substance: ZIPRASIDONE HYDROCHLORIDE
     Dosage: 80 MG, DAILY
     Dates: start: 2014
  5. ZIPRASIDONE HCL [Suspect]
     Active Substance: ZIPRASIDONE HYDROCHLORIDE
     Indication: PSYCHOTHERAPY
     Dosage: 120 MG, DAILY
     Dates: start: 200811, end: 201410
  6. CITALOPRAM [Concomitant]
     Active Substance: CITALOPRAM HYDROBROMIDE
     Indication: PSYCHOTHERAPY
     Dosage: 40 MG, DAILY

REACTIONS (1)
  - Neutropenia [Recovered/Resolved]
